FAERS Safety Report 23180596 (Version 1)
Quarter: 2023Q4

REPORT INFORMATION
  Report Type: Other
  Country: US (occurrence: None)
  Receive Date: 20231114
  Receipt Date: 20231114
  Transmission Date: 20240110
  Serious: No
  Sender: FDA-Public Use
  Company Number: US-ROCHE-3456461

PATIENT
  Age: 63 Year
  Sex: Female
  Weight: 104.42 kg

DRUGS (5)
  1. OCREVUS [Suspect]
     Active Substance: OCRELIZUMAB
     Indication: Secondary progressive multiple sclerosis
     Route: 042
     Dates: start: 202012, end: 202101
  2. DALFAMPRIDINE [Concomitant]
     Active Substance: DALFAMPRIDINE
  3. VESICARE [Concomitant]
     Active Substance: SOLIFENACIN SUCCINATE
  4. BACLOFEN [Concomitant]
     Active Substance: BACLOFEN
  5. IBUPROFEN [Concomitant]
     Active Substance: IBUPROFEN

REACTIONS (5)
  - Diarrhoea [Not Recovered/Not Resolved]
  - COVID-19 [Unknown]
  - B-lymphocyte count decreased [Recovering/Resolving]
  - Gait disturbance [Not Recovered/Not Resolved]
  - Constipation [Unknown]
